FAERS Safety Report 15983671 (Version 1)
Quarter: 2019Q1

REPORT INFORMATION
  Report Type: Spontaneous
  Country: US (occurrence: US)
  Receive Date: 20190220
  Receipt Date: 20190220
  Transmission Date: 20190418
  Serious: No
  Sender: FDA-Public Use
  Company Number: US-HORIZON-ACT-0035-2019

PATIENT
  Age: 49 Year
  Sex: Male

DRUGS (1)
  1. ACTIMMUNE [Suspect]
     Active Substance: INTERFERON GAMMA-1B
     Indication: CHRONIC GRANULOMATOUS DISEASE
     Dosage: 50 MCG 3 TIMES WEEKLY
     Route: 058
     Dates: start: 20181127

REACTIONS (2)
  - Injection site pruritus [Unknown]
  - Urticaria [Unknown]
